FAERS Safety Report 7948346-4 (Version None)
Quarter: 2011Q4

REPORT INFORMATION
  Report Type: 
  Country: None (occurrence: None)
  Receive Date: 20111123
  Receipt Date: 20111107
  Transmission Date: 20120403
  Serious: Yes (Hospitalization)
  Sender: FDA-Public Use
  Company Number: CIO11020782

PATIENT
  Age: 22 Year
  Sex: Female

DRUGS (1)
  1. ACETAMINOPHEN [Suspect]
     Dosage: 15 G, 1 ONLY, ORAL
     Route: 048

REACTIONS (19)
  - ANALGESIC DRUG LEVEL INCREASED [None]
  - BLOOD BILIRUBIN INCREASED [None]
  - BLOOD PH INCREASED [None]
  - TOXICITY TO VARIOUS AGENTS [None]
  - INTRACRANIAL PRESSURE INCREASED [None]
  - AMINO ACID LEVEL INCREASED [None]
  - BLOOD LACTATE DEHYDROGENASE INCREASED [None]
  - COMA [None]
  - ENCEPHALOPATHY [None]
  - UNRESPONSIVE TO STIMULI [None]
  - ALANINE AMINOTRANSFERASE INCREASED [None]
  - HYPERAMMONAEMIA [None]
  - OVERDOSE [None]
  - POSTURING [None]
  - BRAIN OEDEMA [None]
  - BLOOD PHOSPHORUS DECREASED [None]
  - ACUTE HEPATIC FAILURE [None]
  - ASPARTATE AMINOTRANSFERASE INCREASED [None]
  - PCO2 DECREASED [None]
